FAERS Safety Report 18207791 (Version 1)
Quarter: 2020Q3

REPORT INFORMATION
  Report Type: Spontaneous
  Country: US (occurrence: US)
  Receive Date: 20200828
  Receipt Date: 20200828
  Transmission Date: 20201103
  Serious: No
  Sender: FDA-Public Use
  Company Number: US-BAYER-2020-179605

PATIENT
  Sex: Female

DRUGS (2)
  1. HUMIRA [Concomitant]
     Active Substance: ADALIMUMAB
  2. MIRENA [Suspect]
     Active Substance: LEVONORGESTREL
     Indication: CONTRACEPTION
     Dosage: 20 ?G PER DAY CONTINOUSLY
     Route: 015
     Dates: start: 201704

REACTIONS (9)
  - Skin irritation [None]
  - Anger [None]
  - Pruritus [None]
  - Psoriasis [None]
  - Helplessness [None]
  - Emotional distress [None]
  - Frustration tolerance decreased [None]
  - Pain [None]
  - Self-consciousness [None]
